FAERS Safety Report 11947457 (Version 2)
Quarter: 2016Q1

REPORT INFORMATION
  Report Type: Report from Study
  Country: US (occurrence: US)
  Receive Date: 20160125
  Receipt Date: 20160312
  Transmission Date: 20160526
  Serious: Yes (Other)
  Sender: FDA-Public Use
  Company Number: US-AMGEN-USASL2015130160

PATIENT
  Age: 68 Year
  Sex: Female

DRUGS (1)
  1. REPATHA [Suspect]
     Active Substance: EVOLOCUMAB
     Indication: HYPERCHOLESTEROLAEMIA
     Dosage: 140 MG, Q2WK
     Route: 065
     Dates: start: 20151204

REACTIONS (29)
  - Depression [Unknown]
  - Angina pectoris [Unknown]
  - Bone pain [Not Recovered/Not Resolved]
  - Tremor [Unknown]
  - Dry skin [Unknown]
  - Paraesthesia [Unknown]
  - Temporomandibular joint syndrome [Unknown]
  - Drug administered at inappropriate site [Not Recovered/Not Resolved]
  - Sleep disorder [Not Recovered/Not Resolved]
  - Abdominal pain upper [Unknown]
  - Weight decreased [Recovering/Resolving]
  - Arthralgia [Not Recovered/Not Resolved]
  - Anxiety [Unknown]
  - Pain [Unknown]
  - Dyspnoea [Not Recovered/Not Resolved]
  - Muscle rigidity [Not Recovered/Not Resolved]
  - Heart rate increased [Unknown]
  - Restless legs syndrome [Not Recovered/Not Resolved]
  - Asthenia [Unknown]
  - Neck pain [Unknown]
  - Injection site pain [Not Recovered/Not Resolved]
  - Quality of life decreased [Unknown]
  - Chest pain [Unknown]
  - Myalgia [Not Recovered/Not Resolved]
  - Back pain [Not Recovered/Not Resolved]
  - Wrong technique in product usage process [Unknown]
  - Pruritus [Unknown]
  - Pain in jaw [Unknown]
  - Device issue [Unknown]

NARRATIVE: CASE EVENT DATE: 20151204
